FAERS Safety Report 7961277-9 (Version None)
Quarter: 2011Q4

REPORT INFORMATION
  Report Type: 
  Country: None (occurrence: None)
  Receive Date: 20111207
  Receipt Date: 20111205
  Transmission Date: 20120403
  Serious: Yes (Other)
  Sender: FDA-Public Use
  Company Number: PHEH2011US010920

PATIENT
  Age: 27 Year
  Sex: Male
  Weight: 65.76 kg

DRUGS (3)
  1. TOBI [Suspect]
     Dosage: 300 MG, TWICE A DAY FOR 28 DAYS, REPEAT EVERY OTHER MONTH
     Dates: start: 20100927
  2. CAYSTON [Concomitant]
  3. PULMOZYME [Concomitant]

REACTIONS (1)
  - UPPER RESPIRATORY TRACT INFECTION [None]
